FAERS Safety Report 5479084-8 (Version None)
Quarter: 2007Q4

REPORT INFORMATION
  Report Type: 
  Country: None (occurrence: None)
  Receive Date: 20071006
  Receipt Date: 20070925
  Transmission Date: 20080405
  Serious: Yes (Other)
  Sender: FDA-Public Use
  Company Number: US-PFIZER INC-2007081605

PATIENT
  Sex: Female
  Weight: 81.8 kg

DRUGS (10)
  1. CHANTIX [Suspect]
     Indication: SMOKING CESSATION THERAPY
     Route: 048
  2. NEXIUM [Concomitant]
  3. EFFEXOR [Concomitant]
  4. BUSPAR [Concomitant]
  5. CELEBREX [Concomitant]
  6. AMBIEN [Concomitant]
  7. LORAZEPAM [Concomitant]
  8. HYOSCYAMINE [Concomitant]
  9. HYDROXYZINE [Concomitant]
  10. LYRICA [Concomitant]

REACTIONS (6)
  - DIARRHOEA [None]
  - DYSPHAGIA [None]
  - SENSATION OF FOREIGN BODY [None]
  - THROAT IRRITATION [None]
  - THROAT TIGHTNESS [None]
  - VOMITING [None]
